FAERS Safety Report 4477477-9 (Version None)
Quarter: 2004Q4

REPORT INFORMATION
  Report Type: 
  Country: None (occurrence: None)
  Receive Date: 20041004
  Receipt Date: 20040921
  Transmission Date: 20050328
  Serious: No
  Sender: FDA-Public Use
  Company Number: HQWYE162722SEP04

PATIENT
  Age: 37 Year
  Sex: Male
  Weight: 101.7 kg

DRUGS (5)
  1. BENEFIX [Suspect]
     Indication: FACTOR IX DEFICIENCY
     Dosage: SEE IMAGE
     Route: 042
     Dates: start: 20040907, end: 20040907
  2. BENEFIX [Suspect]
     Indication: FACTOR IX DEFICIENCY
     Dosage: SEE IMAGE
     Route: 042
     Dates: start: 20040908, end: 20040909
  3. BENEFIX [Suspect]
     Indication: FACTOR IX DEFICIENCY
     Dosage: SEE IMAGE
     Route: 042
     Dates: start: 20040910, end: 20040910
  4. BENEFIX [Suspect]
     Indication: FACTOR IX DEFICIENCY
     Dosage: SEE IMAGE
     Route: 042
     Dates: start: 20040911, end: 20040912
  5. BENEFIX [Suspect]
     Indication: FACTOR IX DEFICIENCY
     Dosage: SEE IMAGE
     Route: 042
     Dates: start: 20040914

REACTIONS (2)
  - COAGULATION FACTOR IX LEVEL DECREASED [None]
  - DRUG EFFECT DECREASED [None]
